FAERS Safety Report 5816527-1 (Version None)
Quarter: 2008Q3

REPORT INFORMATION
  Report Type: 
  Country: None (occurrence: None)
  Receive Date: 20080717
  Receipt Date: 20080717
  Transmission Date: 20090109
  Serious: No
  Sender: FDA-Public Use
  Company Number: None

PATIENT
  Age: 39 Year
  Sex: Female
  Weight: 54.4316 kg

DRUGS (3)
  1. LEVAQUIN [Suspect]
     Indication: EAR INFECTION
     Dates: start: 20080508, end: 20080513
  2. AVELOX [Suspect]
     Indication: SINUSITIS
  3. FACTIVE [Suspect]
     Indication: SINUSITIS

REACTIONS (11)
  - FATIGUE [None]
  - FEELING ABNORMAL [None]
  - GRIP STRENGTH DECREASED [None]
  - HYPOAESTHESIA [None]
  - JOB DISSATISFACTION [None]
  - JOINT SWELLING [None]
  - MUSCULOSKELETAL PAIN [None]
  - OEDEMA PERIPHERAL [None]
  - PAIN IN EXTREMITY [None]
  - PARAESTHESIA [None]
  - TENDON PAIN [None]
